FAERS Safety Report 11661853 (Version 1)
Quarter: 2015Q4

REPORT INFORMATION
  Report Type: Spontaneous
  Country: JP (occurrence: JP)
  Receive Date: 20151026
  Receipt Date: 20151026
  Transmission Date: 20160304
  Serious: Yes (Other)
  Sender: FDA-Public Use
  Company Number: PHJP2000JP005116

PATIENT
  Age: 30 Year
  Sex: Male

DRUGS (1)
  1. VOLTAREN [Suspect]
     Active Substance: DICLOFENAC SODIUM
     Indication: PRODUCT USED FOR UNKNOWN INDICATION
     Route: 048
     Dates: start: 199904, end: 199905

REACTIONS (2)
  - Oculomucocutaneous syndrome [Unknown]
  - Liver disorder [Unknown]

NARRATIVE: CASE EVENT DATE: 199905
